FAERS Safety Report 9860629 (Version 2)
Quarter: 2014Q1

REPORT INFORMATION
  Report Type: Spontaneous
  Country: US (occurrence: US)
  Receive Date: 20140202
  Receipt Date: 20140202
  Transmission Date: 20141002
  Serious: No
  Sender: FDA-Public Use
  Company Number: US-ALLERGAN-1300410US

PATIENT
  Age: 44 Year
  Sex: Female

DRUGS (3)
  1. BOTOX [Suspect]
     Indication: SKIN WRINKLING
     Dosage: 21 UNITS, SINGLE
     Route: 030
     Dates: start: 20121121, end: 20121121
  2. BOTOX [Suspect]
     Indication: SKIN WRINKLING
  3. VITAMINS [Concomitant]
     Indication: NUTRITIONAL SUPPLEMENTATION
     Dosage: 1 DF, QD
     Route: 048

REACTIONS (24)
  - Influenza like illness [Recovering/Resolving]
  - Pneumonia [Recovering/Resolving]
  - Muscle spasms [Unknown]
  - Sympathomimetic effect [Unknown]
  - Night sweats [Unknown]
  - Muscle spasticity [Unknown]
  - Muscular weakness [Unknown]
  - Viral infection [Unknown]
  - Pulmonary congestion [Unknown]
  - Dyspnoea [Unknown]
  - Dry mouth [Unknown]
  - Dysphagia [Unknown]
  - Fatigue [Unknown]
  - Hypopnoea [Unknown]
  - Respiratory rate decreased [Unknown]
  - Heart rate increased [Unknown]
  - Neurogenic bladder [Unknown]
  - Insomnia [Unknown]
  - Blood pressure fluctuation [Unknown]
  - Gastrointestinal motility disorder [Unknown]
  - Activities of daily living impaired [Unknown]
  - Muscle twitching [Unknown]
  - Feeling abnormal [Not Recovered/Not Resolved]
  - Neurodegenerative disorder [Not Recovered/Not Resolved]
